FAERS Safety Report 25177516 (Version 2)
Quarter: 2025Q2

REPORT INFORMATION
  Report Type: Spontaneous
  Country: US (occurrence: None)
  Receive Date: 20250409
  Receipt Date: 20250515
  Transmission Date: 20250717
  Serious: No
  Sender: ENCUBE ETHICALS
  Company Number: US-Encube-001713

PATIENT
  Sex: Male

DRUGS (2)
  1. PERMETHRIN [Suspect]
     Active Substance: PERMETHRIN
     Indication: Scabies
  2. PERMETHRIN [Suspect]
     Active Substance: PERMETHRIN
     Indication: Scabies

REACTIONS (1)
  - Drug ineffective [Unknown]
